FAERS Safety Report 7796021-1 (Version None)
Quarter: 2011Q4

REPORT INFORMATION
  Report Type: 
  Country: None (occurrence: None)
  Receive Date: 20111004
  Receipt Date: 20110926
  Transmission Date: 20120403
  Serious: Yes (Death)
  Sender: FDA-Public Use
  Company Number: FR-CEPHALON-2011004954

PATIENT
  Sex: Male

DRUGS (2)
  1. DURAGESIC-100 [Concomitant]
  2. ACTIQ [Suspect]
     Indication: PAIN
     Route: 002

REACTIONS (1)
  - DEATH [None]
